FAERS Safety Report 14941019 (Version 1)
Quarter: 2018Q2

REPORT INFORMATION
  Report Type: Spontaneous
  Country: US (occurrence: US)
  Receive Date: 20180525
  Receipt Date: 20180525
  Transmission Date: 20180711
  Serious: No
  Sender: FDA-Public Use
  Company Number: US-009507513-1805USA003751

PATIENT
  Sex: Female
  Weight: 61.68 kg

DRUGS (1)
  1. NEXPLANON [Suspect]
     Active Substance: ETONOGESTREL
     Dosage: DOSE: 1 ROD
     Route: 059
     Dates: start: 201509

REACTIONS (2)
  - Complication associated with device [Recovered/Resolved]
  - Device difficult to use [Not Recovered/Not Resolved]
